FAERS Safety Report 5839266-X (Version None)
Quarter: 2008Q3

REPORT INFORMATION
  Report Type: 
  Country: None (occurrence: None)
  Receive Date: 20080808
  Receipt Date: 20080730
  Transmission Date: 20090109
  Serious: Yes (Other)
  Sender: FDA-Public Use
  Company Number: CA-GILEAD-2008-0017576

PATIENT
  Age: 51 Year
  Sex: Male

DRUGS (9)
  1. TRUVADA [Suspect]
     Indication: HIV INFECTION
     Dates: start: 20060101
  2. KALETRA [Concomitant]
     Indication: HIV INFECTION
     Dates: start: 20060101
  3. ACYCLOVIR [Concomitant]
     Indication: HERPES ZOSTER
  4. CYMBALTA [Concomitant]
  5. TYLENOL W/ CODEINE [Concomitant]
  6. VIAGRA [Concomitant]
  7. FLONASE [Concomitant]
     Indication: HYPERSENSITIVITY
  8. OPTICROM EYEDROPS [Concomitant]
     Indication: HYPERSENSITIVITY
     Route: 031
  9. ASPIRIN [Concomitant]
     Indication: HEADACHE

REACTIONS (2)
  - DEAFNESS BILATERAL [None]
  - TINNITUS [None]
